FAERS Safety Report 6241835-2 (Version None)
Quarter: 2009Q2

REPORT INFORMATION
  Report Type: 
  Country: None (occurrence: None)
  Receive Date: 20090623
  Receipt Date: 20090619
  Transmission Date: 20091009
  Serious: Yes (Hospitalization)
  Sender: FDA-Public Use
  Company Number: FR-WYE-G03636109

PATIENT
  Sex: Male
  Weight: 87 kg

DRUGS (4)
  1. TORISEL [Suspect]
     Indication: METASTATIC RENAL CELL CARCINOMA
     Dosage: 15 MG
     Route: 042
     Dates: start: 20090423, end: 20090423
  2. TORISEL [Suspect]
     Dosage: 15 MG
     Route: 042
     Dates: start: 20090507, end: 20090507
  3. AVASTIN [Suspect]
     Indication: METASTATIC RENAL CELL CARCINOMA
     Dosage: 940 MG
     Route: 042
     Dates: start: 20090423, end: 20090423
  4. AVASTIN [Suspect]
     Dosage: 870 MG
     Route: 042
     Dates: start: 20090507, end: 20090507

REACTIONS (2)
  - ABDOMINAL PAIN LOWER [None]
  - CONDITION AGGRAVATED [None]
